FAERS Safety Report 6119987-4 (Version None)
Quarter: 2009Q1

REPORT INFORMATION
  Report Type: 
  Country: None (occurrence: None)
  Receive Date: 20090316
  Receipt Date: 20090304
  Transmission Date: 20090719
  Serious: Yes (Hospitalization)
  Sender: FDA-Public Use
  Company Number: SE-ELI_LILLY_AND_COMPANY-SE200903000975

PATIENT
  Sex: Female

DRUGS (15)
  1. CYMBALTA [Suspect]
     Indication: DEPRESSION
     Dosage: UNK, UNKNOWN
     Route: 065
     Dates: start: 20081201, end: 20081201
  2. BRICANYL [Concomitant]
     Dosage: 0.5 MG, UNKNOWN
     Route: 065
  3. LYRICA [Concomitant]
     Dosage: 50 MG, UNKNOWN
     Route: 065
  4. OMEPRAZOLE [Concomitant]
     Dosage: UNK, UNKNOWN
     Route: 065
  5. METOPROLOL TARTRATE [Concomitant]
     Dosage: UNK, UNKNOWN
     Route: 065
  6. FELODIPINE [Concomitant]
     Dosage: UNK, UNKNOWN
     Route: 065
  7. SIMVASTATIN [Concomitant]
     Dosage: UNK, UNKNOWN
     Route: 065
  8. PULMICORT-100 [Concomitant]
     Dosage: 200 UG, UNKNOWN
     Route: 065
  9. NOZINAN [Concomitant]
     Dosage: 25 MG, UNKNOWN
     Route: 065
  10. DIAZEPAM [Concomitant]
     Dosage: 10 MG, UNKNOWN
     Route: 065
  11. LASIX [Concomitant]
     Dosage: 30 MG, UNKNOWN
     Route: 065
  12. ACETAMINOPHEN W/ CODEINE [Concomitant]
     Dosage: 500 MG, UNKNOWN
     Route: 065
  13. ACETAMINOPHEN W/ CODEINE [Concomitant]
     Dosage: 30 MG, UNKNOWN
     Route: 065
  14. ZOLPIDEM [Concomitant]
     Dosage: 5 MG, UNKNOWN
     Route: 065
  15. MIANSERIN [Concomitant]
     Dosage: 30 MG, UNKNOWN
     Route: 065

REACTIONS (5)
  - CHEST DISCOMFORT [None]
  - CONVULSION [None]
  - DYSURIA [None]
  - FLUID RETENTION [None]
  - OEDEMA [None]
